FAERS Safety Report 8124367-6 (Version None)
Quarter: 2012Q1

REPORT INFORMATION
  Report Type: 
  Country: None (occurrence: None)
  Receive Date: 20120209
  Receipt Date: 20120201
  Transmission Date: 20120608
  Serious: Yes (Hospitalization, Other)
  Sender: FDA-Public Use
  Company Number: US-US-EMD SERONO, INC.-7015792

PATIENT
  Sex: Female
  Weight: 62 kg

DRUGS (14)
  1. DETROL [Concomitant]
     Indication: URINARY INCONTINENCE
     Route: 048
  2. TRICOR [Concomitant]
     Indication: BLOOD CHOLESTEROL
     Route: 048
  3. CALCIUM [Concomitant]
     Indication: BONE DISORDER
     Route: 048
  4. ZOMIG [Concomitant]
     Indication: MIGRAINE
     Route: 048
  5. VITAMIN B COMPLEX CAP [Concomitant]
     Route: 048
  6. EXCEDRIN (MIGRAINE) [Concomitant]
     Indication: ARTHRITIS
     Route: 048
  7. ZOLOFT [Concomitant]
     Indication: DEPRESSION
  8. PROTONIX [Concomitant]
     Indication: GASTROOESOPHAGEAL REFLUX DISEASE
     Route: 048
  9. BLACK COHASH [Concomitant]
     Indication: NIGHT SWEATS
     Route: 048
  10. ASPIRIN [Concomitant]
     Indication: PREMEDICATION
  11. CORTISONE SHOTS [Concomitant]
     Indication: BURSITIS
  12. REBIF [Suspect]
     Indication: MULTIPLE SCLEROSIS
     Route: 058
     Dates: start: 20100301
  13. ONE A DAY [Concomitant]
     Route: 048
  14. NIASPAN [Concomitant]
     Indication: BLOOD CHOLESTEROL
     Route: 048

REACTIONS (17)
  - ANAEMIA [None]
  - HYPOTHYROIDISM [None]
  - INJECTION SITE PAIN [None]
  - DIZZINESS [None]
  - ANTICOAGULATION DRUG LEVEL BELOW THERAPEUTIC [None]
  - NERVE INJURY [None]
  - ANGER [None]
  - FALL [None]
  - DEPRESSION [None]
  - INJECTION SITE HAEMATOMA [None]
  - INTERVERTEBRAL DISC INJURY [None]
  - INJECTION SITE WARMTH [None]
  - BONE DISORDER [None]
  - INJECTION SITE INDURATION [None]
  - LIVER FUNCTION TEST ABNORMAL [None]
  - CENTRAL NERVOUS SYSTEM LESION [None]
  - INJECTION SITE ERYTHEMA [None]
